FAERS Safety Report 14688241 (Version 1)
Quarter: 2018Q1

REPORT INFORMATION
  Report Type: Spontaneous
  Country: CH (occurrence: CH)
  Receive Date: 20180328
  Receipt Date: 20180328
  Transmission Date: 20180509
  Serious: Yes (Other)
  Sender: FDA-Public Use
  Company Number: CH-ROCHE-2094877

PATIENT
  Age: 84 Year
  Sex: Female

DRUGS (13)
  1. MARCOUMAR [Concomitant]
     Active Substance: PHENPROCOUMON
     Route: 065
  2. BECOZYM [Concomitant]
     Active Substance: VITAMINS
     Route: 065
  3. TAMIFLU [Suspect]
     Active Substance: OSELTAMIVIR PHOSPHATE
     Indication: INFLUENZA
     Route: 048
     Dates: start: 20180307, end: 20180311
  4. EXFORGE HCT [Suspect]
     Active Substance: AMLODIPINE BESYLATE\HYDROCHLOROTHIAZIDE\VALSARTAN
     Indication: HYPERTENSION
     Route: 048
     Dates: end: 20180305
  5. DIOVAN [Concomitant]
     Active Substance: VALSARTAN
     Route: 065
  6. QUETIAPIN [Suspect]
     Active Substance: QUETIAPINE
     Indication: AGITATION
     Route: 048
     Dates: start: 20180305, end: 20180308
  7. AMLODIPIN [Concomitant]
     Active Substance: AMLODIPINE BESYLATE
     Route: 065
  8. TEBOKAN [Concomitant]
     Active Substance: GINKGO
     Route: 065
  9. RELAXANE [Concomitant]
     Route: 065
  10. VITAMIN D3 [Concomitant]
     Active Substance: CHOLECALCIFEROL
     Route: 065
  11. CONCOR [Concomitant]
     Active Substance: BISOPROLOL FUMARATE
     Route: 065
  12. ATORVASTATIN [Concomitant]
     Active Substance: ATORVASTATIN
     Route: 065
  13. DOSPIR [Concomitant]
     Active Substance: ALBUTEROL SULFATE\IPRATROPIUM BROMIDE
     Route: 065

REACTIONS (2)
  - Hyponatraemia [Not Recovered/Not Resolved]
  - Hyponatraemia [Not Recovered/Not Resolved]

NARRATIVE: CASE EVENT DATE: 20180305
